FAERS Safety Report 7881211-X (Version None)
Quarter: 2011Q4

REPORT INFORMATION
  Report Type: 
  Country: None (occurrence: None)
  Receive Date: 20111101
  Receipt Date: 20111027
  Transmission Date: 20120403
  Serious: Yes (Hospitalization, Other)
  Sender: FDA-Public Use
  Company Number: BR-ABBOTT-10P-020-0649883-00

PATIENT
  Sex: Male
  Weight: 70 kg

DRUGS (3)
  1. HUMIRA [Suspect]
     Indication: PSORIASIS
     Route: 058
     Dates: start: 20090709, end: 20100401
  2. METHOTREXATE [Concomitant]
     Indication: PSORIASIS
     Route: 030
     Dates: start: 20081211, end: 20100401
  3. METHOTREXATE [Concomitant]

REACTIONS (7)
  - ARTHRALGIA [None]
  - DENGUE FEVER [None]
  - RASH MACULAR [None]
  - DRUG INEFFECTIVE [None]
  - PSORIASIS [None]
  - ROAD TRAFFIC ACCIDENT [None]
  - LIGAMENT RUPTURE [None]
